FAERS Safety Report 22524303 (Version 1)
Quarter: 2023Q2

REPORT INFORMATION
  Report Type: Spontaneous
  Country: CA (occurrence: None)
  Receive Date: 20230606
  Receipt Date: 20230606
  Transmission Date: 20230722
  Serious: Yes (Disabling, Other)
  Sender: FDA-Public Use
  Company Number: CA-PFIZER INC-202300208981

PATIENT
  Age: 38 Year
  Sex: Female
  Weight: 63 kg

DRUGS (4)
  1. METHOTREXATE [Suspect]
     Active Substance: METHOTREXATE
     Indication: Product used for unknown indication
     Dates: start: 2021, end: 202305
  2. CELEBREX [Concomitant]
     Active Substance: CELECOXIB
  3. HYDROXYCHLOROQUINE [Concomitant]
     Active Substance: HYDROXYCHLOROQUINE
  4. PREDNISONE [Concomitant]
     Active Substance: PREDNISONE

REACTIONS (17)
  - Pain [Unknown]
  - Joint range of motion decreased [Unknown]
  - Movement disorder [Unknown]
  - Arthralgia [Not Recovered/Not Resolved]
  - Mobility decreased [Unknown]
  - Paralysis [Not Recovered/Not Resolved]
  - Loss of personal independence in daily activities [Unknown]
  - Vomiting [Unknown]
  - Peripheral swelling [Unknown]
  - Insomnia [Unknown]
  - Skin discolouration [Unknown]
  - Pain in extremity [Unknown]
  - Crying [Unknown]
  - Balance disorder [Unknown]
  - Fall [Unknown]
  - Impaired work ability [Unknown]
  - Impaired driving ability [Unknown]
